FAERS Safety Report 9174954 (Version 1)
Quarter: 2013Q1

REPORT INFORMATION
  Report Type: Spontaneous
  Country: US (occurrence: US)
  Receive Date: 20130320
  Receipt Date: 20130320
  Transmission Date: 20140127
  Serious: No
  Sender: FDA-Public Use
  Company Number: US-BAYER-2013-035062

PATIENT
  Age: 77 Year
  Sex: Female
  Weight: 65.76 kg

DRUGS (2)
  1. ALEVE [Suspect]
     Indication: ARTHRITIS
     Dosage: 1 DF, QD
     Route: 048
     Dates: start: 201301
  2. ALEVE [Suspect]
     Indication: ARTHRITIS
     Dosage: 1 DF, EVERY 6 HRS
     Route: 048
     Dates: start: 201302

REACTIONS (2)
  - Incorrect drug administration duration [None]
  - Overdose [None]
